FAERS Safety Report 5875036-4 (Version None)
Quarter: 2008Q3

REPORT INFORMATION
  Report Type: 
  Country: None (occurrence: None)
  Receive Date: 20080908
  Receipt Date: 20080908
  Transmission Date: 20090109
  Serious: Yes (Other)
  Sender: FDA-Public Use
  Company Number: None

PATIENT
  Age: 57 Year
  Sex: Female
  Weight: 71.6683 kg

DRUGS (2)
  1. CLINDAMYCIN HCL [Suspect]
     Indication: ENDODONTIC PROCEDURE
     Dosage: 300MG 4X DAILY PO
     Route: 048
     Dates: start: 20080814, end: 20080828
  2. CLINDAMYCIN HCL [Suspect]
     Indication: TOOTH INFECTION
     Dosage: 300MG 4X DAILY PO
     Route: 048
     Dates: start: 20080814, end: 20080828

REACTIONS (6)
  - ABDOMINAL DISCOMFORT [None]
  - ABNORMAL FAECES [None]
  - DIARRHOEA [None]
  - FLATULENCE [None]
  - MUCOUS STOOLS [None]
  - STOMACH DISCOMFORT [None]
